FAERS Safety Report 14873147 (Version 1)
Quarter: 2018Q2

REPORT INFORMATION
  Report Type: Spontaneous
  Country: FR (occurrence: FR)
  Receive Date: 20180510
  Receipt Date: 20180510
  Transmission Date: 20180711
  Serious: Yes (Hospitalization, Other)
  Sender: FDA-Public Use
  Company Number: FR-SUN PHARMACEUTICAL INDUSTRIES LTD-2018RR-172412

PATIENT
  Age: 78 Year
  Sex: Female
  Weight: 68 kg

DRUGS (15)
  1. OXALIPLATIN. [Suspect]
     Active Substance: OXALIPLATIN
     Indication: RECTAL CANCER
     Dosage: 50 MG, UNK
     Route: 042
     Dates: start: 2006, end: 2006
  2. PULMICORT TURBUHALER [Suspect]
     Active Substance: BUDESONIDE
     Indication: CHRONIC OBSTRUCTIVE PULMONARY DISEASE
     Dosage: 200 ?G, BID
     Route: 055
     Dates: start: 2015
  3. BOTULINUM TOXIN TYPE A POWDER FOR INJECTION [Suspect]
     Active Substance: BOTULINUM TOXIN TYPE A
     Indication: ANAL INCONTINENCE
     Dosage: 500 UNITS, SINGLE/ 9 INJECTIONS DE 500 UNITES ()
     Route: 030
     Dates: start: 201201, end: 201201
  4. BOTULINUM TOXIN TYPE A POWDER FOR INJECTION [Suspect]
     Active Substance: BOTULINUM TOXIN TYPE A
     Dosage: 500 UNITS, SINGLE ()
     Route: 030
  5. BURINEX [Suspect]
     Active Substance: BUMETANIDE
     Indication: HYPERTENSION
     Dosage: 5 MG, DAILY
     Route: 048
     Dates: start: 201708
  6. CORTANCYL [Suspect]
     Active Substance: PREDNISONE
     Indication: CHRONIC OBSTRUCTIVE PULMONARY DISEASE
     Dosage: 12 MG, QD
     Route: 048
     Dates: start: 201708
  7. TRIFLUCAN [Suspect]
     Active Substance: FLUCONAZOLE
     Indication: FUNGAL INFECTION
     Dosage: 50 BAINS DE BOUCHE ()
     Route: 002
     Dates: start: 201708
  8. VENTOLINE [Suspect]
     Active Substance: ALBUTEROL
     Indication: ASTHMA
     Dosage: 1 DF, PRN
     Route: 055
     Dates: start: 201708
  9. ULTIBRO BREEZHALER [Suspect]
     Active Substance: GLYCOPYRRONIUM\INDACATEROL
     Indication: CHRONIC OBSTRUCTIVE PULMONARY DISEASE
     Dosage: ()
     Route: 055
  10. SINGULAIR [Suspect]
     Active Substance: MONTELUKAST SODIUM
     Indication: ASTHMA
     Dosage: 10 MG, QD
     Route: 048
  11. DILATRANE [Suspect]
     Active Substance: THEOPHYLLINE
     Indication: CHRONIC OBSTRUCTIVE PULMONARY DISEASE
     Dosage: 300 MG, BID
     Route: 048
  12. SINGULAIR [Suspect]
     Active Substance: MONTELUKAST SODIUM
     Indication: ASTHMA
     Dosage: 100 MG, UNK
     Route: 048
     Dates: start: 2015
  13. TRIFLUCAN [Suspect]
     Active Substance: FLUCONAZOLE
     Dosage: 50 BAINS DE BOUCHE ()
     Route: 002
     Dates: start: 201708
  14. XELODA [Suspect]
     Active Substance: CAPECITABINE
     Indication: RECTAL CANCER
     Dosage: 825 MG/M2, UNK
     Route: 048
     Dates: start: 2006, end: 2006
  15. DIFFU K [Suspect]
     Active Substance: POTASSIUM CHLORIDE
     Indication: HYPOKALAEMIA
     Dosage: 2 DF, QD
     Route: 048
     Dates: start: 201708

REACTIONS (4)
  - Congestive cardiomyopathy [Not Recovered/Not Resolved]
  - Arteriosclerosis coronary artery [Not Recovered/Not Resolved]
  - Off label use [Unknown]
  - Left ventricular failure [Not Recovered/Not Resolved]

NARRATIVE: CASE EVENT DATE: 201708
